FAERS Safety Report 23282000 (Version 1)
Quarter: 2023Q4

REPORT INFORMATION
  Report Type: Report from Study
  Country: CA (occurrence: CA)
  Receive Date: 20231211
  Receipt Date: 20231211
  Transmission Date: 20240110
  Serious: Yes (Hospitalization, Other)
  Sender: FDA-Public Use
  Company Number: CA-TAKEDA-2023TUS117789

PATIENT
  Sex: Male

DRUGS (1)
  1. LISDEXAMFETAMINE DIMESYLATE [Suspect]
     Active Substance: LISDEXAMFETAMINE DIMESYLATE
     Indication: Attention deficit hyperactivity disorder
     Dosage: 70 MILLIGRAM, QD
     Route: 048

REACTIONS (5)
  - Tourette^s disorder [Unknown]
  - Atrial septal defect [Unknown]
  - Autism spectrum disorder [Unknown]
  - Anxiety [Unknown]
  - Off label use [Unknown]
